FAERS Safety Report 6523513-5 (Version None)
Quarter: 2009Q4

REPORT INFORMATION
  Report Type: 
  Country: None (occurrence: None)
  Receive Date: 20091231
  Receipt Date: 20091218
  Transmission Date: 20100525
  Serious: Yes (Hospitalization)
  Sender: FDA-Public Use
  Company Number: PHHY2008CA31083

PATIENT
  Sex: Male

DRUGS (3)
  1. EXJADE [Suspect]
     Indication: WALDENSTROM'S MACROGLOBULINAEMIA
     Dosage: 1000 MG, UNK
     Route: 048
     Dates: start: 20080301
  2. EXJADE [Suspect]
     Indication: LEUKAEMIA
     Dosage: 1500 MG, QD
     Route: 048
  3. EXJADE [Suspect]
     Dosage: 1500 MG, QD
     Dates: start: 20091218

REACTIONS (4)
  - GASTROINTESTINAL SURGERY [None]
  - HEPATIC ENZYME INCREASED [None]
  - INFLUENZA [None]
  - MALAISE [None]
